FAERS Safety Report 6662915-3 (Version None)
Quarter: 2010Q1

REPORT INFORMATION
  Report Type: 
  Country: None (occurrence: None)
  Receive Date: 20100323
  Receipt Date: 20100120
  Transmission Date: 20100710
  Serious: No
  Sender: FDA-Public Use
  Company Number: 2010US000004

PATIENT
  Age: 50 Year
  Sex: Male

DRUGS (2)
  1. ENTEREG [Suspect]
     Indication: POSTOPERATIVE ILEUS
     Dosage: 12 MG; 1X; PO
     Route: 048
     Dates: start: 20091215, end: 20091215
  2. LORTAB [Concomitant]

REACTIONS (7)
  - DIARRHOEA [None]
  - DISCOMFORT [None]
  - DYSPNOEA [None]
  - HYPOXIA [None]
  - MALAISE [None]
  - POSTOPERATIVE ILEUS [None]
  - VOMITING [None]
